FAERS Safety Report 9562609 (Version 3)
Quarter: 2013Q4

REPORT INFORMATION
  Report Type: Spontaneous
  Country: AU (occurrence: AU)
  Receive Date: 20130927
  Receipt Date: 20131014
  Transmission Date: 20140711
  Serious: Yes (Hospitalization, Other)
  Sender: FDA-Public Use
  Company Number: AU-B.I. PHARMACEUTICALS,INC./RIDGEFIELD-2013-BI-29573AU

PATIENT
  Age: 76 Year
  Sex: Male
  Weight: 84 kg

DRUGS (6)
  1. PRADAXA [Suspect]
     Indication: ATRIAL FIBRILLATION
     Dates: end: 20130105
  2. ATENOLOL [Concomitant]
  3. DIABEX [Concomitant]
  4. LISINOPRIL [Concomitant]
  5. NORVASC [Concomitant]
  6. NEXIUM [Concomitant]

REACTIONS (3)
  - Rectal haemorrhage [Recovered/Resolved]
  - Gastrointestinal carcinoma [Recovered/Resolved]
  - Haematochezia [Recovered/Resolved]
